FAERS Safety Report 18033889 (Version 2)
Quarter: 2020Q4

REPORT INFORMATION
  Report Type: Spontaneous
  Country: US (occurrence: US)
  Receive Date: 20200716
  Receipt Date: 20201109
  Transmission Date: 20210113
  Serious: Yes (Other)
  Sender: FDA-Public Use
  Company Number: US-BAUSCH-BL-2020-019869

PATIENT
  Sex: Male

DRUGS (1)
  1. MESALAMINE EXTENDED-RELEASE CAPSULES [Suspect]
     Active Substance: MESALAMINE
     Indication: COLITIS ULCERATIVE
     Route: 065

REACTIONS (2)
  - Colitis ulcerative [Unknown]
  - Inability to afford medication [Unknown]
